FAERS Safety Report 11047682 (Version 1)
Quarter: 2015Q2

REPORT INFORMATION
  Report Type: Spontaneous
  Country: FR (occurrence: FR)
  Receive Date: 20150420
  Receipt Date: 20150420
  Transmission Date: 20150821
  Serious: Yes (Hospitalization)
  Sender: FDA-Public Use
  Company Number: FR-AMGEN-FRASP2015037340

PATIENT
  Age: 66 Year
  Sex: Male

DRUGS (1)
  1. ENBREL [Suspect]
     Active Substance: ETANERCEPT
     Indication: PSORIATIC ARTHROPATHY
     Dosage: 50 MG, EVERY 14 DAYS
     Route: 058
     Dates: start: 200904

REACTIONS (4)
  - Colorectal adenocarcinoma [Recovered/Resolved]
  - Inflammation [Unknown]
  - Back pain [Unknown]
  - Arthropathy [Unknown]
